FAERS Safety Report 9601803 (Version 2)
Quarter: 2013Q4

REPORT INFORMATION
  Report Type: Spontaneous
  Country: GB (occurrence: None)
  Receive Date: 20131002
  Receipt Date: 20131017
  Transmission Date: 20140711
  Serious: Yes (Hospitalization)
  Sender: FDA-Public Use
  Company Number: AUR-APL-2013-08002

PATIENT
  Age: 27 Year
  Sex: Male

DRUGS (1)
  1. RISPERIDONE [Suspect]
     Indication: ANTISOCIAL BEHAVIOUR
     Route: 048

REACTIONS (3)
  - Extrapyramidal disorder [None]
  - Treatment noncompliance [None]
  - Off label use [None]
